FAERS Safety Report 10220478 (Version 2)
Quarter: 2014Q2

REPORT INFORMATION
  Report Type: Spontaneous
  Country: US (occurrence: US)
  Receive Date: 20140606
  Receipt Date: 20140626
  Transmission Date: 20141212
  Serious: Yes (Other)
  Sender: FDA-Public Use
  Company Number: US-PFIZER INC-2014152891

PATIENT
  Age: 48 Year
  Sex: Male

DRUGS (3)
  1. VIAGRA [Suspect]
     Dosage: 100 MG, DAILY
  2. LISINOPRIL [Concomitant]
     Dosage: 20, ONCE DAILY
  3. VICODIN [Concomitant]
     Dosage: 5/325 ONE DOSAGE FORM, Q6H

REACTIONS (1)
  - Joint injury [Unknown]
